FAERS Safety Report 14977307 (Version 1)
Quarter: 2018Q2

REPORT INFORMATION
  Report Type: Spontaneous
  Country: US (occurrence: US)
  Receive Date: 20180606
  Receipt Date: 20180606
  Transmission Date: 20180711
  Serious: Yes (Other)
  Sender: FDA-Public Use
  Company Number: US-ROCHE-2135015

PATIENT
  Sex: Female

DRUGS (2)
  1. XELODA [Suspect]
     Active Substance: CAPECITABINE
     Indication: BREAST CANCER FEMALE
     Dosage: 4 TAB TWICE A DAY FOR 7 DAYS AND 7 DAYS OFF
     Route: 048
     Dates: start: 20170914
  2. XELODA [Suspect]
     Active Substance: CAPECITABINE
     Indication: METASTASES TO SKIN

REACTIONS (4)
  - Fall [Unknown]
  - Rib fracture [Unknown]
  - Fatigue [Unknown]
  - Asthenia [Unknown]
